FAERS Safety Report 5992597-5 (Version None)
Quarter: 2008Q4

REPORT INFORMATION
  Report Type: 
  Country: None (occurrence: None)
  Receive Date: 20081211
  Receipt Date: 20080523
  Transmission Date: 20090506
  Serious: No
  Sender: FDA-Public Use
  Company Number: US-AMGEN-KDL281833

PATIENT
  Sex: Female

DRUGS (2)
  1. ENBREL [Suspect]
     Indication: RHEUMATOID ARTHRITIS
     Route: 058
     Dates: start: 20080516
  2. LEFLUNOMIDE [Concomitant]
     Route: 048

REACTIONS (6)
  - GAIT DISTURBANCE [None]
  - INJECTION SITE IRRITATION [None]
  - INJECTION SITE PAIN [None]
  - JOINT STIFFNESS [None]
  - LOCAL SWELLING [None]
  - PAIN IN EXTREMITY [None]
